FAERS Safety Report 16254298 (Version 1)
Quarter: 2019Q2

REPORT INFORMATION
  Report Type: Report from Study
  Country: US (occurrence: US)
  Receive Date: 20190430
  Receipt Date: 20190430
  Transmission Date: 20190711
  Serious: Yes (Other)
  Sender: FDA-Public Use
  Company Number: US-ROCHE-2309074

PATIENT
  Sex: Male

DRUGS (2)
  1. OCREVUS [Suspect]
     Active Substance: OCRELIZUMAB
     Indication: RELAPSING MULTIPLE SCLEROSIS
     Dosage: ONGOING: YES
     Route: 065
     Dates: start: 20190212
  2. OCREVUS [Suspect]
     Active Substance: OCRELIZUMAB
     Dosage: ONGOING: YES
     Route: 065
     Dates: start: 20190226

REACTIONS (4)
  - Cough [Not Recovered/Not Resolved]
  - Influenza like illness [Unknown]
  - Gastrooesophageal reflux disease [Not Recovered/Not Resolved]
  - Sinusitis [Not Recovered/Not Resolved]
